FAERS Safety Report 6078274-3 (Version None)
Quarter: 2009Q1

REPORT INFORMATION
  Report Type: 
  Country: None (occurrence: None)
  Receive Date: 20090213
  Receipt Date: 20090205
  Transmission Date: 20090719
  Serious: Yes (Other)
  Sender: FDA-Public Use
  Company Number: JP-GENENTECH-276994

PATIENT
  Sex: Male

DRUGS (2)
  1. RITUXAN [Suspect]
     Indication: LYMPHOMA
  2. ETOPOSIDE [Concomitant]
     Indication: LYMPHOMA

REACTIONS (1)
  - GASTROINTESTINAL HAEMORRHAGE [None]
